FAERS Safety Report 8611080-1 (Version None)
Quarter: 2012Q3

REPORT INFORMATION
  Report Type: 
  Country: None (occurrence: None)
  Receive Date: 20120822
  Receipt Date: 20120813
  Transmission Date: 20120928
  Serious: Yes (Other)
  Sender: FDA-Public Use
  Company Number: BR-ASTRAZENECA-2012SE57541

PATIENT
  Age: 60 Year
  Sex: Male

DRUGS (7)
  1. ATENOLOL [Suspect]
     Indication: BLOOD PRESSURE ABNORMAL
     Route: 048
  2. LOSARTAN POTASSIUM [Concomitant]
     Indication: BLOOD PRESSURE ABNORMAL
     Dates: start: 20050101
  3. LIPITOR [Suspect]
     Route: 048
     Dates: start: 20050101
  4. LOSARTAN POTASSIUM [Concomitant]
     Indication: CARDIAC DISORDER
     Dates: start: 20050101
  5. UNKNOWN MEDICATION [Concomitant]
     Indication: ENDOCRINE DISORDER
  6. DESAGREGE [Concomitant]
     Indication: PLATELET DISORDER
     Dates: start: 20050101, end: 20120201
  7. CLOPIM [Concomitant]
     Indication: PLATELET DISORDER
     Dates: start: 20050101

REACTIONS (4)
  - BENIGN PROSTATIC HYPERPLASIA [None]
  - RHINITIS ALLERGIC [None]
  - BLOOD CHOLESTEROL INCREASED [None]
  - DIABETES MELLITUS [None]
